FAERS Safety Report 11711675 (Version 1)
Quarter: 2015Q4

REPORT INFORMATION
  Report Type: Spontaneous
  Country: GB (occurrence: GB)
  Receive Date: 20151107
  Receipt Date: 20151107
  Transmission Date: 20160304
  Serious: Yes (Other)
  Sender: FDA-Public Use
  Company Number: GB-TEVA-605499ACC

PATIENT
  Age: 87 Year
  Sex: Female
  Weight: 64 kg

DRUGS (13)
  1. ENOXAPARIN [Concomitant]
     Active Substance: ENOXAPARIN
     Dosage: 1 DOSAGE FORMS DAILY;
     Dates: start: 20150918, end: 20150919
  2. PROPRANOLOL [Concomitant]
     Active Substance: PROPRANOLOL\PROPRANOLOL HYDROCHLORIDE
     Dosage: 1 DOSAGE FORMS DAILY; IN THE MORNING; DAILY DOSE: 1 DF
     Dates: start: 20150403
  3. FUROSEMIDE. [Concomitant]
     Active Substance: FUROSEMIDE
     Dosage: 1 DOSAGE FORMS DAILY; IN THE MORNING; DAILY DOSE: 1 DF
     Dates: start: 20150403
  4. HYDROXOCOBALAMIN [Concomitant]
     Active Substance: HYDROXOCOBALAMIN
     Dates: start: 20150403
  5. SALBUTAMOL [Concomitant]
     Active Substance: ALBUTEROL
     Dosage: EVERY 4 TO 6 HOURS.
     Route: 055
     Dates: start: 20150903, end: 20150928
  6. TRIMETHOPRIM. [Concomitant]
     Active Substance: TRIMETHOPRIM
     Indication: PROPHYLAXIS
     Dosage: 1 DOSAGE FORMS DAILY; EVERY NIGHT; DAILY DOSE:1DF
     Dates: start: 20150403
  7. FOSFOMYCIN [Concomitant]
     Active Substance: FOSFOMYCIN
     Dosage: ONE SACHET ON WEDNESDAY, FRIDAY AND SUNDAY.
     Dates: start: 20150930, end: 20151003
  8. WARFARIN SODIUM. [Concomitant]
     Active Substance: WARFARIN SODIUM
     Dosage: 1 DOSAGE FORMS DAILY; AT 18:00HRS THEN CHECK INTERNATIONAL NORMALISED RATIO; DAILY DOSE: 1DF
     Dates: start: 20150918
  9. CEFALEXIN [Concomitant]
     Active Substance: CEPHALEXIN
     Dosage: 3 DOSAGE FORMS DAILY;
     Dates: start: 20150903, end: 20150910
  10. LEVOTHYROXINE. [Concomitant]
     Active Substance: LEVOTHYROXINE
     Dosage: 1 DOSAGE FORMS DAILY; EACH MORNING; DAILY DOSE: 1DF
     Dates: start: 20150403
  11. NITROFURANTOIN. [Suspect]
     Active Substance: NITROFURANTOIN
     Dates: start: 20150930
  12. ASPIRIN. [Concomitant]
     Active Substance: ASPIRIN
     Dosage: 1 DOSAGE FORMS DAILY;
     Dates: start: 20150403, end: 20150918
  13. PARACETAMOL [Concomitant]
     Active Substance: ACETAMINOPHEN
     Dosage: 4 TIME A DAY WHEN REQUIRED
     Dates: start: 20150403

REACTIONS (3)
  - Erythema [Recovered/Resolved]
  - Feeling hot [Recovered/Resolved]
  - Flushing [Recovered/Resolved]

NARRATIVE: CASE EVENT DATE: 20151016
